FAERS Safety Report 24209521 (Version 7)
Quarter: 2024Q4

REPORT INFORMATION
  Report Type: Report from Study
  Country: US (occurrence: US)
  Receive Date: 20240814
  Receipt Date: 20241121
  Transmission Date: 20250114
  Serious: Yes (Other)
  Sender: INSMED
  Company Number: US-INSMED-2024-02856-USAA

PATIENT
  Sex: Female

DRUGS (2)
  1. ARIKAYCE [Suspect]
     Active Substance: AMIKACIN
     Indication: Mycobacterium avium complex infection
     Dosage: 590 MILLIGRAM, QD
     Route: 055
     Dates: start: 20240703, end: 2024
  2. SODIUM CHLORIDE [Concomitant]
     Active Substance: SODIUM CHLORIDE
     Indication: Product used for unknown indication
     Dosage: UNK, UNK
     Route: 065

REACTIONS (21)
  - Bronchiectasis [Unknown]
  - Oxygen saturation decreased [Recovered/Resolved]
  - Oxygen saturation decreased [Recovering/Resolving]
  - Cardiac operation [Unknown]
  - Tachycardia [Not Recovered/Not Resolved]
  - Burn oral cavity [Unknown]
  - Loss of personal independence in daily activities [Not Recovered/Not Resolved]
  - Heart rate irregular [Recovering/Resolving]
  - Back pain [Unknown]
  - Pain [Unknown]
  - Chills [Unknown]
  - Bronchitis [Unknown]
  - Dysphonia [Not Recovered/Not Resolved]
  - Diarrhoea [Recovering/Resolving]
  - Fatigue [Not Recovered/Not Resolved]
  - Productive cough [Unknown]
  - Nausea [Unknown]
  - Asthenia [Not Recovered/Not Resolved]
  - Cough [Recovered/Resolved]
  - Adverse drug reaction [Unknown]
  - Dyspnoea [Recovered/Resolved]

NARRATIVE: CASE EVENT DATE: 20240101
